FAERS Safety Report 5044220-4 (Version None)
Quarter: 2006Q2

REPORT INFORMATION
  Report Type: 
  Country: None (occurrence: None)
  Receive Date: 20060629
  Receipt Date: 20060616
  Transmission Date: 20061013
  Serious: Yes (Hospitalization, Other)
  Sender: FDA-Public Use
  Company Number: 200613611BWH

PATIENT
  Age: 54 Year
  Sex: Male
  Weight: 67.2 kg

DRUGS (13)
  1. SORAFENIB [Suspect]
     Indication: URETERIC CANCER METASTATIC
     Dosage: 400 MG, BID, ORAL
     Route: 048
     Dates: start: 20060513, end: 20060517
  2. MOXIFLOXACIN HCL [Suspect]
  3. NEURONTIN [Concomitant]
  4. FOLIC ACID [Concomitant]
  5. OXYCODONE HCL [Concomitant]
  6. PREDNISONE [Concomitant]
  7. COMBIVENT [Concomitant]
  8. METOCLOPRAMIDE HYDROCHLORIDE [Concomitant]
  9. OXYCONTIN [Concomitant]
  10. MOTRIN [Concomitant]
  11. ZITHROMAX [Concomitant]
  12. FLOMAX [Concomitant]
  13. MEGACE [Concomitant]

REACTIONS (3)
  - BRONCHOSPASM [None]
  - DYSPNOEA [None]
  - INFECTION [None]
